FAERS Safety Report 23268977 (Version 1)
Quarter: 2023Q4

REPORT INFORMATION
  Report Type: Spontaneous
  Country: US (occurrence: None)
  Receive Date: 20231206
  Receipt Date: 20231206
  Transmission Date: 20240109
  Serious: No
  Sender: FDA-Public Use
  Company Number: US-RedHill Biopharma Inc.-RDH202307-000089

PATIENT
  Age: 59 Year
  Sex: Female

DRUGS (1)
  1. TALICIA [Suspect]
     Active Substance: AMOXICILLIN\OMEPRAZOLE MAGNESIUM\RIFABUTIN
     Indication: Helicobacter infection
     Dosage: UNK
     Route: 048
     Dates: start: 20230701, end: 20230705

REACTIONS (3)
  - Lip swelling [Recovered/Resolved]
  - Hypoaesthesia oral [Unknown]
  - Paraesthesia oral [Unknown]

NARRATIVE: CASE EVENT DATE: 20230701
